FAERS Safety Report 4803877-0 (Version None)
Quarter: 2005Q3

REPORT INFORMATION
  Report Type: 
  Country: None (occurrence: None)
  Receive Date: 20050920
  Receipt Date: 20050715
  Transmission Date: 20060218
  Serious: No
  Sender: FDA-Public Use
  Company Number: US-YAMANOUCHI-YPA20050297

PATIENT
  Age: 79 Year
  Sex: Female
  Weight: 68.0396 kg

DRUGS (8)
  1. VESICARE [Suspect]
     Indication: HYPERTONIC BLADDER
     Dosage: 5 MG QD PO
     Route: 048
     Dates: start: 20050310, end: 20050407
  2. VESICARE [Suspect]
     Indication: HYPERTONIC BLADDER
     Dosage: 5 MG BID PO
     Route: 048
     Dates: start: 20050407
  3. NORVASC [Concomitant]
  4. TOPROL-XL [Concomitant]
  5. VITAMIN E [Concomitant]
  6. CALCIUM GLUCONATE [Concomitant]
  7. NEXIUM [Concomitant]
  8. MULTI-VITAMINS [Concomitant]

REACTIONS (2)
  - CONSTIPATION [None]
  - VISION BLURRED [None]
